FAERS Safety Report 6503869-X (Version None)
Quarter: 2009Q4

REPORT INFORMATION
  Report Type: 
  Country: None (occurrence: None)
  Receive Date: 20091217
  Receipt Date: 20091209
  Transmission Date: 20100525
  Serious: Yes (Hospitalization)
  Sender: FDA-Public Use
  Company Number: B0613128A

PATIENT
  Sex: Female

DRUGS (1)
  1. ARIXTRA [Suspect]
     Indication: DRUG USE FOR UNKNOWN INDICATION
     Route: 058
     Dates: end: 20090401

REACTIONS (6)
  - COMPARTMENT SYNDROME [None]
  - HAEMATOMA [None]
  - NECROSIS [None]
  - PYREXIA [None]
  - VARICOSE VEIN RUPTURED [None]
  - WOUND INFECTION [None]
